FAERS Safety Report 8176911-0 (Version None)
Quarter: 2012Q1

REPORT INFORMATION
  Report Type: 
  Country: None (occurrence: None)
  Receive Date: 20120301
  Receipt Date: 20120224
  Transmission Date: 20120608
  Serious: Yes (Hospitalization)
  Sender: FDA-Public Use
  Company Number: BE-B.I. PHARMACEUTICALS,INC./RIDGEFIELD-2012-BL-00142BL

PATIENT
  Age: 75 Year
  Sex: Male
  Weight: 68.5 kg

DRUGS (11)
  1. COMBIVENT [Suspect]
     Indication: ASTHMA
     Route: 055
  2. ASPIRIN [Concomitant]
     Dosage: 80 MG
  3. SPIRIVA [Suspect]
     Indication: ASTHMA
     Dosage: 18 MCG
     Route: 055
  4. KEPPRA [Concomitant]
     Dosage: 500 MG
  5. PERINDOPRIL ERBUMINE [Concomitant]
     Dosage: 5 MG
  6. LOMUDAL [Concomitant]
     Dosage: 2MG/2ML TWICE A DAY
  7. MEMANTINE HYDROCHLORIDE [Concomitant]
     Dosage: 20 MG
  8. ESCITALOPRAM OXALATE [Concomitant]
     Dosage: 10 MG
  9. MEDROL [Concomitant]
     Dosage: 6 MG
  10. FORADIL [Concomitant]
     Dosage: 12 MCG
     Route: 055
  11. SEDANXIO [Concomitant]

REACTIONS (5)
  - MICTURITION FREQUENCY DECREASED [None]
  - ABDOMINAL DISTENSION [None]
  - DYSURIA [None]
  - BLADDER DILATATION [None]
  - ABDOMINAL PAIN LOWER [None]
